FAERS Safety Report 25328957 (Version 1)
Quarter: 2025Q2

REPORT INFORMATION
  Report Type: Report from Study
  Country: US (occurrence: US)
  Receive Date: 20250519
  Receipt Date: 20250519
  Transmission Date: 20250717
  Serious: Yes (Hospitalization)
  Sender: ACADIA PHARMACEUTICALS
  Company Number: US-ACADIA PHARMACEUTICALS INC.-ACA-2025-PIM-005786

PATIENT
  Sex: Male

DRUGS (14)
  1. NUPLAZID [Suspect]
     Active Substance: PIMAVANSERIN TARTRATE
     Indication: Parkinson^s disease
     Dosage: 34 MILLIGRAM, QD
     Route: 048
     Dates: start: 20240730
  2. TRESIBA [Concomitant]
     Active Substance: INSULIN DEGLUDEC
  3. NOVOLOG [Concomitant]
     Active Substance: INSULIN ASPART
  4. FUROSEMIDE [Concomitant]
     Active Substance: FUROSEMIDE
  5. LOSARTAN [Concomitant]
     Active Substance: LOSARTAN
  6. UNITHROID [Concomitant]
     Active Substance: LEVOTHYROXINE SODIUM
  7. ROPINIROLE [Concomitant]
     Active Substance: ROPINIROLE
  8. CARBIDOPA\LEVODOPA [Concomitant]
     Active Substance: CARBIDOPA\LEVODOPA
  9. BRINZOLAMIDE [Concomitant]
     Active Substance: BRINZOLAMIDE
  10. COMBIGAN [Concomitant]
     Active Substance: BRIMONIDINE TARTRATE\TIMOLOL MALEATE
  11. LUMIGAN [Concomitant]
     Active Substance: BIMATOPROST
  12. RAMELTEON [Concomitant]
     Active Substance: RAMELTEON
  13. TAMSULOSIN [Concomitant]
     Active Substance: TAMSULOSIN
  14. CARBIDOPA [Concomitant]
     Active Substance: CARBIDOPA

REACTIONS (1)
  - Catheter site infection [Recovered/Resolved]
